FAERS Safety Report 10429923 (Version 3)
Quarter: 2014Q4

REPORT INFORMATION
  Report Type: Spontaneous
  Country: JP (occurrence: JP)
  Receive Date: 20140904
  Receipt Date: 20141217
  Transmission Date: 20150528
  Serious: Yes (Other)
  Sender: FDA-Public Use
  Company Number: JP-OTSUKA-JP-2014-17331

PATIENT

DRUGS (7)
  1. MAINTATE [Suspect]
     Active Substance: BISOPROLOL FUMARATE
     Indication: PRODUCT USED FOR UNKNOWN INDICATION
     Dosage: UNK
     Route: 048
  2. SAMSCA [Suspect]
     Active Substance: TOLVAPTAN
     Indication: OEDEMA DUE TO CARDIAC DISEASE
     Dosage: 3.75 MG MILLIGRAM(S), DAILY DOSE
     Route: 048
     Dates: start: 2013
  3. RENIVACE [Suspect]
     Active Substance: ENALAPRIL
     Indication: PRODUCT USED FOR UNKNOWN INDICATION
     Dosage: UNK
     Route: 048
  4. LASIX M [Suspect]
     Active Substance: FUROSEMIDE
     Indication: PRODUCT USED FOR UNKNOWN INDICATION
     Dosage: UNK
     Route: 065
  5. OMEPRAZOLE. [Suspect]
     Active Substance: OMEPRAZOLE
     Indication: PRODUCT USED FOR UNKNOWN INDICATION
     Dosage: UNK
     Route: 065
  6. PIMOBENDAN [Suspect]
     Active Substance: PIMOBENDAN
     Indication: PRODUCT USED FOR UNKNOWN INDICATION
     Dosage: UNK
     Route: 048
  7. DEPAS [Suspect]
     Active Substance: ETIZOLAM
     Indication: PRODUCT USED FOR UNKNOWN INDICATION
     Dosage: UNK
     Route: 048

REACTIONS (1)
  - Rash vesicular [Recovered/Resolved]

NARRATIVE: CASE EVENT DATE: 20140825
